FAERS Safety Report 13384838 (Version 1)
Quarter: 2017Q1

REPORT INFORMATION
  Report Type: Spontaneous
  Country: US (occurrence: US)
  Receive Date: 20170329
  Receipt Date: 20170329
  Transmission Date: 20170429
  Serious: No
  Sender: FDA-Public Use
  Company Number: None

PATIENT
  Age: 24 Year
  Sex: Male
  Weight: 73.8 kg

DRUGS (5)
  1. LAMOTRIGENE [Concomitant]
     Active Substance: LAMOTRIGINE
  2. PAXEL [Concomitant]
     Active Substance: PACLITAXEL
  3. HUMALOG [Concomitant]
     Active Substance: INSULIN LISPRO
  4. METHYLPHENIDATE. [Concomitant]
     Active Substance: METHYLPHENIDATE
  5. HAIR REGROWTH TREATMENT FOR MEN [Suspect]
     Active Substance: MINOXIDIL
     Indication: ALOPECIA
     Dosage: ?          QUANTITY:1 DROP(S);?
     Route: 061
     Dates: start: 20170219, end: 20170328

REACTIONS (1)
  - Weight increased [None]

NARRATIVE: CASE EVENT DATE: 20170319
